FAERS Safety Report 9300888 (Version 1)
Quarter: 2013Q2

REPORT INFORMATION
  Report Type: Spontaneous
  Country: AU (occurrence: AU)
  Receive Date: 20130521
  Receipt Date: 20130521
  Transmission Date: 20140414
  Serious: Yes (Other)
  Sender: FDA-Public Use
  Company Number: AU-ROCHE-1224185

PATIENT
  Age: 61 Year
  Sex: Female

DRUGS (4)
  1. PEGASYS [Suspect]
     Indication: HEPATITIS C
     Dosage: DOSE VALUE (90-135)
     Route: 065
     Dates: start: 2011
  2. COPEGUS [Suspect]
     Indication: HEPATITIS C
     Dosage: 400-600 MG
     Route: 065
     Dates: start: 2011
  3. BOCEPREVIR [Suspect]
     Indication: HEPATITIS C
     Route: 065
     Dates: start: 201207
  4. OXYNORM [Concomitant]

REACTIONS (7)
  - Treatment failure [Unknown]
  - Lethargy [Unknown]
  - Depression [Unknown]
  - Anxiety [Unknown]
  - Platelet count abnormal [Unknown]
  - Hepatocellular carcinoma [Unknown]
  - Liver transplant [Unknown]
